FAERS Safety Report 24682295 (Version 1)
Quarter: 2024Q4

REPORT INFORMATION
  Report Type: Spontaneous
  Country: JP (occurrence: JP)
  Receive Date: 20241130
  Receipt Date: 20241130
  Transmission Date: 20250115
  Serious: Yes (Hospitalization)
  Sender: ACCORD
  Company Number: JP-MLMSERVICE-20241115-PI258964-00082-1

PATIENT
  Age: 7 Decade
  Sex: Female

DRUGS (4)
  1. CARBOPLATIN [Suspect]
     Active Substance: CARBOPLATIN
     Indication: Lung adenocarcinoma stage IV
  2. PEMBROLIZUMAB [Suspect]
     Active Substance: PEMBROLIZUMAB
     Indication: Lung adenocarcinoma stage IV
  3. PACLITAXEL [Concomitant]
     Active Substance: PACLITAXEL
     Indication: Lung adenocarcinoma stage IV
  4. PREDNISOLONE [Concomitant]
     Active Substance: PREDNISOLONE
     Indication: Immune-mediated gastritis

REACTIONS (1)
  - Chronic myeloid leukaemia [Recovering/Resolving]
